FAERS Safety Report 19775273 (Version 3)
Quarter: 2022Q1

REPORT INFORMATION
  Report Type: Spontaneous
  Country: CA (occurrence: CA)
  Receive Date: 20210901
  Receipt Date: 20220223
  Transmission Date: 20220423
  Serious: Yes (Other)
  Sender: FDA-Public Use
  Company Number: CA-MLMSERVICE-20210809-3041403-1

PATIENT
  Age: 11 Year
  Sex: Male
  Weight: 51.7 kg

DRUGS (16)
  1. LINEZOLID [Suspect]
     Active Substance: LINEZOLID
     Indication: Streptococcal infection
     Dosage: 300 MILLIGRAM, ONCE A DAY
     Route: 048
  2. LINEZOLID [Suspect]
     Active Substance: LINEZOLID
     Indication: Device related infection
     Dosage: 600 MILLIGRAM, TWO TIMES A DAY (30.5 MG/KG/DAY)
     Route: 048
  3. LINEZOLID [Suspect]
     Active Substance: LINEZOLID
     Indication: Infection
     Dosage: 30.5 MILLIGRAM/KILOGRAM, ONCE A DAY
     Route: 042
  4. LINEZOLID [Suspect]
     Active Substance: LINEZOLID
     Indication: Evidence based treatment
     Dosage: 300 MILLIGRAM, ONCE A DAY
     Route: 042
  5. LINEZOLID [Suspect]
     Active Substance: LINEZOLID
     Dosage: 600 MILLIGRAM, TWO TIMES A DAY
     Route: 042
  6. METRONIDAZOLE [Suspect]
     Active Substance: METRONIDAZOLE
     Indication: Streptococcal infection
     Dosage: 500 MILLIGRAM, 3 TIMES A DAY (30.5 MG/KG/DAY)
     Route: 048
  7. METRONIDAZOLE [Suspect]
     Active Substance: METRONIDAZOLE
     Indication: Device related infection
     Dosage: 500 MILLIGRAM, 3 TIMES A DAY
     Route: 042
  8. METRONIDAZOLE [Suspect]
     Active Substance: METRONIDAZOLE
     Indication: Infection
  9. METRONIDAZOLE [Suspect]
     Active Substance: METRONIDAZOLE
     Indication: Evidence based treatment
  10. METRONIDAZOLE [Suspect]
     Active Substance: METRONIDAZOLE
     Indication: Infection
     Dosage: 30.5 MILLIGRAM/KILOGRAM, ONCE A DAY
     Route: 042
  11. METRONIDAZOLE [Suspect]
     Active Substance: METRONIDAZOLE
     Indication: Evidence based treatment
  12. CEFTRIAXONE [Suspect]
     Active Substance: CEFTRIAXONE
     Indication: Streptococcal infection
     Dosage: 500 MILLIGRAM, 3 TIMES A DAY
     Route: 042
  13. CEFTRIAXONE [Suspect]
     Active Substance: CEFTRIAXONE
     Indication: Device related infection
  14. CEFTRIAXONE [Suspect]
     Active Substance: CEFTRIAXONE
     Indication: Infection
  15. CEFTRIAXONE [Suspect]
     Active Substance: CEFTRIAXONE
     Indication: Evidence based treatment
  16. VANCOMYCIN [Concomitant]
     Active Substance: VANCOMYCIN
     Indication: Evidence based treatment
     Dosage: UNK
     Route: 065

REACTIONS (8)
  - Neuropathy peripheral [Recovered/Resolved]
  - Anaemia [Recovered/Resolved]
  - Limb discomfort [Recovered/Resolved]
  - Neuralgia [Recovered/Resolved]
  - Paraesthesia [Recovered/Resolved]
  - Weight bearing difficulty [Recovered/Resolved]
  - Treatment failure [Recovered/Resolved]
  - Drug ineffective [Unknown]
